FAERS Safety Report 4564558-4 (Version None)
Quarter: 2005Q1

REPORT INFORMATION
  Report Type: 
  Country: None (occurrence: None)
  Receive Date: 20050126
  Receipt Date: 20050112
  Transmission Date: 20050727
  Serious: Yes (Other)
  Sender: FDA-Public Use
  Company Number: 2005-DE-00131GD

PATIENT

DRUGS (2)
  1. PRAMIPEXOLE (PRAMIPEXOLE DIHYDROCHLORIDE) (PRAMIPEXOLE) [Suspect]
     Indication: MAJOR DEPRESSION
  2. ANTIDEPRESSANTS (ANTIDEPRESSANTS) [Suspect]
     Indication: MAJOR DEPRESSION

REACTIONS (1)
  - COORDINATION ABNORMAL [None]
